FAERS Safety Report 8045219-6 (Version None)
Quarter: 2012Q1

REPORT INFORMATION
  Report Type: 
  Country: None (occurrence: None)
  Receive Date: 20120113
  Receipt Date: 20120109
  Transmission Date: 20120608
  Serious: Yes (Hospitalization, Congenital Anomaly, Other)
  Sender: FDA-Public Use
  Company Number: US-PFIZER INC-2008051539

PATIENT
  Sex: Female
  Weight: 3 kg

DRUGS (1)
  1. ZOLOFT [Suspect]
     Dosage: UNK
     Route: 064

REACTIONS (14)
  - RIGHT ATRIAL DILATATION [None]
  - PULMONARY OEDEMA [None]
  - TRICUSPID VALVE INCOMPETENCE [None]
  - DILATATION VENTRICULAR [None]
  - CARDIAC DISORDER [None]
  - ATRIOVENTRICULAR BLOCK FIRST DEGREE [None]
  - ELECTROCARDIOGRAM QT PROLONGED [None]
  - CONGENITAL CORONARY ARTERY MALFORMATION [None]
  - AORTIC VALVE INCOMPETENCE [None]
  - CARDIOMEGALY [None]
  - FOETAL EXPOSURE DURING PREGNANCY [None]
  - PNEUMOTHORAX [None]
  - FALLOT'S TETRALOGY [None]
  - PULMONARY HYPERTENSION [None]
